FAERS Safety Report 17571898 (Version 17)
Quarter: 2023Q1

REPORT INFORMATION
  Report Type: Report from Study
  Country: US (occurrence: US)
  Receive Date: 20200323
  Receipt Date: 20230323
  Transmission Date: 20230418
  Serious: Yes (Other)
  Sender: FDA-Public Use
  Company Number: US-SHIRE-US202010884

PATIENT
  Age: 67 Year
  Sex: Female
  Weight: 68 kg

DRUGS (37)
  1. HUMAN IMMUNOGLOBULIN G\HYALURONIDASE RECOMBINANT HUMAN [Suspect]
     Active Substance: HUMAN IMMUNOGLOBULIN G\HYALURONIDASE RECOMBINANT HUMAN
     Indication: Selective IgG subclass deficiency
     Dosage: 30 GRAM, Q4WEEKS
     Route: 058
     Dates: start: 20170807
  2. HUMAN IMMUNOGLOBULIN G\HYALURONIDASE RECOMBINANT HUMAN [Suspect]
     Active Substance: HUMAN IMMUNOGLOBULIN G\HYALURONIDASE RECOMBINANT HUMAN
     Indication: Immunodeficiency common variable
     Dosage: 30 GRAM, Q4WEEKS
     Route: 058
     Dates: start: 20170815
  3. HUMAN IMMUNOGLOBULIN G\HYALURONIDASE RECOMBINANT HUMAN [Suspect]
     Active Substance: HUMAN IMMUNOGLOBULIN G\HYALURONIDASE RECOMBINANT HUMAN
     Dosage: 30 GRAM, Q4WEEKS
     Route: 058
     Dates: start: 20180412
  4. ZYRTEC [Concomitant]
     Active Substance: CETIRIZINE HYDROCHLORIDE
     Dosage: UNK
  5. ACETAMINOPHEN [Concomitant]
     Active Substance: ACETAMINOPHEN
     Dosage: UNK
  6. DIPHENHYDRAMINE [Concomitant]
     Active Substance: DIPHENHYDRAMINE
     Dosage: UNK
  7. LIDOCAINE [Concomitant]
     Active Substance: LIDOCAINE
     Dosage: UNK
  8. SODIUM CHLORIDE [Concomitant]
     Active Substance: SODIUM CHLORIDE
     Dosage: UNK
  9. PROAIR HFA [Concomitant]
     Active Substance: ALBUTEROL SULFATE
     Dosage: UNK
  10. EPINEPHRINE [Concomitant]
     Active Substance: EPINEPHRINE
     Dosage: UNK
  11. MAGNESIUM [Concomitant]
     Active Substance: MAGNESIUM
     Dosage: UNK
     Route: 065
  12. Sleep aid [Concomitant]
     Dosage: UNK
  13. IBUPROFEN [Concomitant]
     Active Substance: IBUPROFEN
     Dosage: UNK
  14. ALBUTEROL SULFATE [Concomitant]
     Active Substance: ALBUTEROL SULFATE
     Dosage: UNK
  15. HERBALS\PLANTAGO OVATA SEED COAT [Concomitant]
     Active Substance: HERBALS\PLANTAGO OVATA SEED COAT
     Dosage: UNK
  16. ATORVASTATIN [Concomitant]
     Active Substance: ATORVASTATIN
     Dosage: UNK
  17. CALCIUM [Concomitant]
     Active Substance: CALCIUM
     Dosage: UNK
  18. SODIUM CHLORIDE [Concomitant]
     Active Substance: SODIUM CHLORIDE
     Dosage: UNK
  19. ALBUTEROL SULFATE [Concomitant]
     Active Substance: ALBUTEROL SULFATE
     Dosage: UNK
  20. ATORVASTATIN CALCIUM [Concomitant]
     Active Substance: ATORVASTATIN CALCIUM
     Dosage: UNK
  21. HYOSCYAMINE SULFATE [Concomitant]
     Active Substance: HYOSCYAMINE SULFATE
     Dosage: UNK
     Route: 065
  22. BUSPIRONE HCL [Concomitant]
     Active Substance: BUSPIRONE HYDROCHLORIDE
     Dosage: UNK
     Route: 065
  23. GLYCEROPHOSPHATE [Concomitant]
     Dosage: UNK
     Route: 065
  24. SOLIFENACIN [Concomitant]
     Active Substance: SOLIFENACIN
     Dosage: UNK
     Route: 065
  25. OXYCODONE AND ACETAMINOPHEN [Concomitant]
     Active Substance: ACETAMINOPHEN\OXYCODONE HYDROCHLORIDE
     Dosage: UNK
     Route: 065
  26. HYOSCYAMINE SULFATE [Concomitant]
     Active Substance: HYOSCYAMINE SULFATE
  27. VESICARE [Concomitant]
     Active Substance: SOLIFENACIN SUCCINATE
  28. TIZANIDINE HYDROCHLORIDE [Concomitant]
     Active Substance: TIZANIDINE HYDROCHLORIDE
  29. DIAZEPAM [Concomitant]
     Active Substance: DIAZEPAM
  30. CLINDAMYCIN HYDROCHLORIDE [Concomitant]
     Active Substance: CLINDAMYCIN HYDROCHLORIDE
  31. ALBUTEROL [Concomitant]
     Active Substance: ALBUTEROL
     Route: 065
  32. CALCIUM GLYCEROPHOSPHATE [Concomitant]
     Active Substance: CALCIUM GLYCEROPHOSPHATE
  33. NEOSPORIN [Concomitant]
     Active Substance: BACITRACIN ZINC\NEOMYCIN SULFATE\POLYMYXIN B SULFATE
  34. VASELINE PURE [Concomitant]
     Active Substance: PETROLATUM
  35. DULCOLAX NOS [Concomitant]
     Active Substance: BISACODYL OR DOCUSATE SODIUM
  36. MIRALAX [Concomitant]
     Active Substance: POLYETHYLENE GLYCOL 3350
  37. CETIRIZINE HCL [Concomitant]
     Active Substance: CETIRIZINE HYDROCHLORIDE

REACTIONS (17)
  - Knee arthroplasty [Unknown]
  - Injection site rash [Unknown]
  - Irritable bowel syndrome [Unknown]
  - Urinary tract infection [Unknown]
  - Cystitis interstitial [Unknown]
  - Middle ear effusion [Unknown]
  - Cystitis [Unknown]
  - Tooth disorder [Unknown]
  - COVID-19 [Unknown]
  - Skin laceration [Unknown]
  - Bronchitis [Unknown]
  - Back pain [Not Recovered/Not Resolved]
  - Infusion site erythema [Recovering/Resolving]
  - Infusion site swelling [Unknown]
  - Infusion site pain [Recovering/Resolving]
  - Infusion site pruritus [Recovering/Resolving]
  - Headache [Unknown]

NARRATIVE: CASE EVENT DATE: 20201103
